FAERS Safety Report 8949710 (Version 3)
Quarter: 2013Q4

REPORT INFORMATION
  Report Type: Report from Study
  Country: JP (occurrence: JP)
  Receive Date: 20121206
  Receipt Date: 20131227
  Transmission Date: 20140711
  Serious: Yes (Other)
  Sender: FDA-Public Use
  Company Number: JP-VERTEX PHARMACEUTICAL INC.-AE-2012-008099

PATIENT
  Age: 61 Year
  Sex: Male

DRUGS (7)
  1. VX-950 (TELAPREVIR) [Suspect]
     Indication: CHRONIC HEPATITIS C
     Dosage: 2250 MG, QD
     Route: 048
     Dates: start: 20120221, end: 20120423
  2. VX-950 (TELAPREVIR) [Suspect]
     Dosage: 1500 MG, QD
     Route: 048
     Dates: start: 20120424, end: 20120430
  3. RIBAVIRIN [Suspect]
     Indication: CHRONIC HEPATITIS C
     Dosage: 800 MG, QD
     Route: 048
     Dates: start: 20120221, end: 20120326
  4. RIBAVIRIN [Suspect]
     Dosage: 600 MG, QD
     Route: 048
     Dates: start: 20120327, end: 20120402
  5. RIBAVIRIN [Suspect]
     Dosage: 400 MG, QD
     Route: 048
     Dates: start: 20120403, end: 20120430
  6. PEGINTERFERON ALFA-2B [Suspect]
     Indication: CHRONIC HEPATITIS C
     Dosage: 1.37 ?G/KG, QW
     Route: 058
     Dates: start: 20120221, end: 20120430
  7. TALION [Concomitant]
     Dosage: 20 MG, QD
     Route: 048
     Dates: start: 20120508, end: 20120702

REACTIONS (2)
  - Haemoglobin decreased [Recovered/Resolved]
  - Subdural haematoma [Not Recovered/Not Resolved]
